FAERS Safety Report 21228267 (Version 3)
Quarter: 2022Q3

REPORT INFORMATION
  Report Type: Spontaneous
  Country: US (occurrence: US)
  Receive Date: 20220818
  Receipt Date: 20220923
  Transmission Date: 20221027
  Serious: No
  Sender: FDA-Public Use
  Company Number: US-PFIZER INC-202201060335

PATIENT
  Age: 90 Year
  Sex: Female
  Weight: 72.57 kg

DRUGS (2)
  1. PAXLOVID [Suspect]
     Active Substance: NIRMATRELVIR\RITONAVIR
     Indication: COVID-19 treatment
     Dosage: GIVEN PLAN B; 150MG-100MG DOSE PACK
  2. LISINOPRIL [Concomitant]
     Active Substance: LISINOPRIL
     Indication: Hypertension
     Dosage: 20 MG

REACTIONS (8)
  - Cough [Not Recovered/Not Resolved]
  - Taste disorder [Unknown]
  - Myalgia [Unknown]
  - Malaise [Unknown]
  - Asthenia [Unknown]
  - Vertigo [Unknown]
  - Dizziness [Unknown]
  - Sputum discoloured [Unknown]
